FAERS Safety Report 11333334 (Version 1)
Quarter: 2015Q3

REPORT INFORMATION
  Report Type: Spontaneous
  Country: US (occurrence: US)
  Receive Date: 20150803
  Receipt Date: 20150803
  Transmission Date: 20151125
  Serious: No
  Sender: FDA-Public Use
  Company Number: US-ELI_LILLY_AND_COMPANY-US200801004772

PATIENT
  Age: 50 Year

DRUGS (4)
  1. AMBIEN [Concomitant]
     Active Substance: ZOLPIDEM TARTRATE
  2. ZYPREXA [Suspect]
     Active Substance: OLANZAPINE
     Indication: SCHIZOPHRENIA
     Dosage: 40 MG, UNK
     Dates: start: 2006
  3. KLONOPIN [Concomitant]
     Active Substance: CLONAZEPAM
  4. REMERON [Concomitant]
     Active Substance: MIRTAZAPINE

REACTIONS (2)
  - Diabetes mellitus inadequate control [Unknown]
  - Prescribed overdose [Unknown]
